FAERS Safety Report 11900831 (Version 4)
Quarter: 2016Q1

REPORT INFORMATION
  Report Type: Report from Study
  Country: US (occurrence: US)
  Receive Date: 20160108
  Receipt Date: 20160111
  Transmission Date: 20160526
  Serious: No
  Sender: FDA-Public Use
  Company Number: US-ABBVIE-15P-163-1461229-00

PATIENT
  Sex: Female
  Weight: 108.05 kg

DRUGS (2)
  1. VIEKIRA PAK [Suspect]
     Active Substance: DASABUVIR\OMBITASVIR\PARITAPREVIR\RITONAVIR
     Indication: HEPATITIS C
     Dosage: WEEKLY PACK AS DIRECTED BY THE MANUFACTURE
     Route: 048
     Dates: start: 20150806
  2. RIBAVIRIN. [Concomitant]
     Active Substance: RIBAVIRIN
     Indication: HEPATITIS C
     Route: 048

REACTIONS (4)
  - Chromaturia [Not Recovered/Not Resolved]
  - Vomiting [Unknown]
  - Urine odour abnormal [Unknown]
  - Nausea [Not Recovered/Not Resolved]
